FAERS Safety Report 8462481-6 (Version None)
Quarter: 2012Q2

REPORT INFORMATION
  Report Type: 
  Country: None (occurrence: None)
  Receive Date: 20120625
  Receipt Date: 20120613
  Transmission Date: 20120825
  Serious: Yes (Hospitalization)
  Sender: FDA-Public Use
  Company Number: DE-ELI_LILLY_AND_COMPANY-DE201206004528

PATIENT
  Age: 70 Year
  Sex: Male

DRUGS (3)
  1. HUMALOG [Suspect]
     Indication: TYPE 2 DIABETES MELLITUS
     Dosage: UNK UNK, UNKNOWN
     Route: 058
     Dates: end: 20111201
  2. ANTIHYPERTENSIVES [Concomitant]
  3. HUMALOG [Suspect]
     Dosage: UNK, UNKNOWN
     Dates: start: 20111201

REACTIONS (2)
  - PSYCHOMOTOR SKILLS IMPAIRED [None]
  - CEREBROVASCULAR ACCIDENT [None]
